FAERS Safety Report 14779971 (Version 1)
Quarter: 2018Q2

REPORT INFORMATION
  Report Type: Spontaneous
  Country: JP (occurrence: JP)
  Receive Date: 20180419
  Receipt Date: 20180419
  Transmission Date: 20180711
  Serious: Yes (Other)
  Sender: FDA-Public Use
  Company Number: JP-ROCHE-2110151

PATIENT
  Age: 5 Month
  Sex: Female

DRUGS (5)
  1. ACTH [Suspect]
     Active Substance: CORTICOTROPIN
     Route: 030
  2. CLONAZEPAM. [Suspect]
     Active Substance: CLONAZEPAM
     Indication: INFANTILE SPASMS
     Route: 048
  3. ACTH [Suspect]
     Active Substance: CORTICOTROPIN
     Indication: INFANTILE SPASMS
     Route: 030
  4. PHENYTOIN. [Concomitant]
     Active Substance: PHENYTOIN
  5. PHENOBARBITAL. [Concomitant]
     Active Substance: PHENOBARBITAL
     Route: 065

REACTIONS (1)
  - Seizure [Recovered/Resolved]
